FAERS Safety Report 8590250 (Version 2)
Quarter: 2013Q2

REPORT INFORMATION
  Report Type: Spontaneous
  Country: US (occurrence: US)
  Receive Date: 20120601
  Receipt Date: 20130617
  Transmission Date: 20140414
  Serious: Yes (Disabling)
  Sender: FDA-Public Use
  Company Number: US-ASTRAZENECA-2012SE34677

PATIENT
  Age: 579 Month
  Sex: Male
  Weight: 128.8 kg

DRUGS (13)
  1. NEXIUM [Suspect]
     Indication: GASTROOESOPHAGEAL REFLUX DISEASE
     Route: 048
  2. NEXIUM [Suspect]
     Indication: GASTROOESOPHAGEAL REFLUX DISEASE
     Route: 048
     Dates: start: 2000, end: 2013
  3. PEPCID [Concomitant]
  4. ZANTAC [Concomitant]
  5. MYLANTA [Concomitant]
  6. PEPTO-BISMOL [Concomitant]
  7. CELEBREX [Concomitant]
  8. IBPOFEN [Concomitant]
  9. LYRICA [Concomitant]
  10. MULTIVITAMINES [Concomitant]
  11. B-COMPLEX [Concomitant]
  12. ECOTRIN [Concomitant]
  13. TRIBENZOR [Concomitant]

REACTIONS (7)
  - Back disorder [Unknown]
  - Ligament sprain [Unknown]
  - Osteoporosis [Unknown]
  - Arthritis [Unknown]
  - Bone disorder [Unknown]
  - Multiple fractures [Unknown]
  - Intervertebral disc degeneration [Unknown]
